FAERS Safety Report 9827128 (Version 1)
Quarter: 2014Q1

REPORT INFORMATION
  Report Type: Spontaneous
  Country: US (occurrence: US)
  Receive Date: 20140117
  Receipt Date: 20140117
  Transmission Date: 20141002
  Serious: No
  Sender: FDA-Public Use
  Company Number: US-GLAXOSMITHKLINE-A1038768A

PATIENT
  Age: 59 Year
  Sex: Male

DRUGS (9)
  1. PROMACTA [Suspect]
     Indication: THROMBOCYTOPENIA
     Dosage: 25MG PER DAY
     Route: 048
     Dates: start: 20130806
  2. ASPIRIN [Concomitant]
  3. VITAMIN D [Concomitant]
  4. PROCRIT [Concomitant]
  5. LACTULOSE [Concomitant]
  6. PEGINTERFERON (NOS) [Concomitant]
  7. RIBAVIRIN [Concomitant]
  8. HCTZ [Concomitant]
  9. LISINOPRIL [Concomitant]

REACTIONS (2)
  - Platelet count decreased [Not Recovered/Not Resolved]
  - Drug ineffective [Unknown]
